FAERS Safety Report 23859847 (Version 3)
Quarter: 2025Q3

REPORT INFORMATION
  Report Type: Report from Study
  Country: US (occurrence: US)
  Receive Date: 20240515
  Receipt Date: 20250816
  Transmission Date: 20251020
  Serious: Yes (Other)
  Sender: ALEXION PHARMACEUTICALS
  Company Number: US-AstraZeneca-CH-00622402A

PATIENT
  Sex: Female

DRUGS (1)
  1. SOLIRIS [Suspect]
     Active Substance: ECULIZUMAB
     Indication: Atypical haemolytic uraemic syndrome

REACTIONS (10)
  - Syncope [Recovering/Resolving]
  - Venous thrombosis [Recovering/Resolving]
  - Medical device pain [Recovering/Resolving]
  - Localised oedema [Recovering/Resolving]
  - Device issue [Recovering/Resolving]
  - Haemorrhagic cyst [Recovering/Resolving]
  - Vomiting [Recovering/Resolving]
  - Abdominal pain upper [Recovering/Resolving]
  - Dyspepsia [Recovering/Resolving]
  - Product dose omission issue [Unknown]
